FAERS Safety Report 7150461-2 (Version None)
Quarter: 2010Q4

REPORT INFORMATION
  Report Type: 
  Country: None (occurrence: None)
  Receive Date: 20101210
  Receipt Date: 20101207
  Transmission Date: 20110411
  Serious: Yes (Death, Other)
  Sender: FDA-Public Use
  Company Number: PHFR2010GB02023

PATIENT
  Sex: Male
  Weight: 99 kg

DRUGS (5)
  1. CLOZARIL [Suspect]
     Dosage: 150 MG DAILY
     Route: 048
     Dates: start: 20080817
  2. SOLIFENACIN [Concomitant]
     Indication: POLLAKIURIA
     Dosage: 5 MG DAILY
     Route: 048
  3. CALCIUM CARBONATE W/COLECALCIFEROL [Concomitant]
     Indication: MOBILITY DECREASED
     Dosage: 1.25 G/10 MCG DAILY
     Route: 048
  4. HYDROXYZINE [Concomitant]
     Indication: ECZEMA
     Dosage: 25 MG DAILY
     Route: 048
  5. SIMVASTATIN [Concomitant]
     Indication: HYPERLIPIDAEMIA
     Dosage: 20 MG DAILY
     Route: 048

REACTIONS (3)
  - ANTIPSYCHOTIC DRUG LEVEL INCREASED [None]
  - MYOCARDIAL INFARCTION [None]
  - PNEUMONIA ASPIRATION [None]
